FAERS Safety Report 7628805-4 (Version None)
Quarter: 2011Q3

REPORT INFORMATION
  Report Type: 
  Country: None (occurrence: None)
  Receive Date: 20110722
  Receipt Date: 20110411
  Transmission Date: 20111222
  Serious: No
  Sender: FDA-Public Use
  Company Number: US-BAYER-2011-031400

PATIENT
  Age: 57 Year
  Sex: Female
  Weight: 90.703 kg

DRUGS (2)
  1. TYLENOL-500 [Concomitant]
  2. BETASERON [Suspect]
     Indication: MULTIPLE SCLEROSIS
     Dosage: 0.25 MG/ML, QOD
     Route: 058
     Dates: start: 20050811

REACTIONS (3)
  - CHILLS [None]
  - VOMITING [None]
  - NAUSEA [None]
